FAERS Safety Report 9361143 (Version 1)
Quarter: 2013Q2

REPORT INFORMATION
  Report Type: Spontaneous
  Country: BR (occurrence: BR)
  Receive Date: 20130621
  Receipt Date: 20130621
  Transmission Date: 20140414
  Serious: Yes (Other)
  Sender: FDA-Public Use
  Company Number: BR-PFIZER INC-2013183296

PATIENT
  Age: 83 Year
  Sex: Male

DRUGS (6)
  1. LIPITOR [Suspect]
     Indication: BLOOD CHOLESTEROL
     Dosage: 40 MG, DAILY
     Route: 048
     Dates: start: 20090617
  2. ASPIRINA PREVENT [Concomitant]
     Indication: PROPHYLAXIS
     Dosage: 100 MG, DAILY AT LUNCH TIME
  3. ATENOLOL [Concomitant]
     Indication: HYPERTENSION
     Dosage: 50 MG, DAILY DURING BREAKFAST
  4. CLOPIDOGREL [Concomitant]
     Indication: PROPHYLAXIS
     Dosage: 75 MG, DAILY AT LUNCH TIME
  5. INDAPEN SR [Concomitant]
     Indication: HYPERTENSION
     Dosage: 1.5 MG, DAILY DURING BREAKFAST
  6. LOSARTAN [Concomitant]
     Indication: BLOOD CHOLESTEROL
     Dosage: 50 MG, DAILY AT DINNER

REACTIONS (2)
  - Venous occlusion [Unknown]
  - Arterial occlusive disease [Unknown]
